FAERS Safety Report 10241418 (Version 1)
Quarter: 2014Q1

REPORT INFORMATION
  Report Type: Spontaneous
  Country: US (occurrence: None)
  Receive Date: 20140306
  Receipt Date: 20140306
  Transmission Date: 20141002
  Serious: Yes (Other)
  Sender: FDA-Public Use
  Company Number: 163-21880-13110571

PATIENT
  Age: 76 Year
  Sex: Female

DRUGS (1)
  1. REVLIMID (LENALIDOMIDE) (15 MILLIGRAM CAPSULES) [Suspect]
     Indication: PLASMA CELL MYELOMA
     Dosage: 15MG, 1 IN 1D, PO
     Route: 048
     Dates: start: 201310

REACTIONS (3)
  - Anaemia [None]
  - Immunodeficiency [None]
  - Platelet count decreased [None]
